FAERS Safety Report 7800901-8 (Version None)
Quarter: 2011Q4

REPORT INFORMATION
  Report Type: 
  Country: None (occurrence: None)
  Receive Date: 20111006
  Receipt Date: 20110929
  Transmission Date: 20120403
  Serious: Yes (Life-Threatening, Hospitalization)
  Sender: FDA-Public Use
  Company Number: DE-RB-012656-10

PATIENT
  Age: 36 Year
  Sex: Male
  Weight: 100 kg

DRUGS (2)
  1. SUBUTEX [Suspect]
     Indication: DRUG DEPENDENCE
     Route: 060
     Dates: start: 20060301
  2. SUBUTEX [Suspect]
     Dosage: DAILY
     Route: 048
     Dates: start: 20070904

REACTIONS (4)
  - OEDEMA PERIPHERAL [None]
  - SKIN ULCER [None]
  - OVERDOSE [None]
  - CELLULITIS [None]
